FAERS Safety Report 21870127 (Version 2)
Quarter: 2023Q1

REPORT INFORMATION
  Report Type: Spontaneous
  Country: US (occurrence: US)
  Receive Date: 20230117
  Receipt Date: 20230306
  Transmission Date: 20230417
  Serious: No
  Sender: FDA-Public Use
  Company Number: US-BRISTOL-MYERS SQUIBB COMPANY-2023-006958

PATIENT
  Age: 19 Year
  Sex: Male

DRUGS (2)
  1. SOTYKTU [Suspect]
     Active Substance: DEUCRAVACITINIB
     Indication: Psoriasis
     Route: 048
     Dates: start: 20221217
  2. DOMEBORO [Concomitant]
     Active Substance: ALUMINUM ACETATE
     Indication: Product used for unknown indication
     Dosage: TOPICAL

REACTIONS (5)
  - Stomatitis [Recovering/Resolving]
  - Folliculitis [Unknown]
  - Acne [Unknown]
  - Cough [Unknown]
  - Respiratory tract congestion [Unknown]

NARRATIVE: CASE EVENT DATE: 20221219
